FAERS Safety Report 9675568 (Version 4)
Quarter: 2013Q4

REPORT INFORMATION
  Report Type: Spontaneous
  Country: DE (occurrence: DE)
  Receive Date: 20131107
  Receipt Date: 20131231
  Transmission Date: 20140711
  Serious: Yes (Hospitalization, Other)
  Sender: FDA-Public Use
  Company Number: DE-ABBVIE-13P-062-1165249-00

PATIENT
  Age: 54 Year
  Sex: Male

DRUGS (5)
  1. HUMIRA [Suspect]
     Indication: COLITIS ULCERATIVE
     Route: 058
     Dates: start: 20130618, end: 20131105
  2. HUMIRA [Suspect]
     Route: 058
     Dates: start: 20131203
  3. ANTIHYPERTENSIVES [Concomitant]
     Indication: PRODUCT USED FOR UNKNOWN INDICATION
  4. DRUG FOR POTASSIUM DEFICIENCY [Concomitant]
     Indication: PRODUCT USED FOR UNKNOWN INDICATION
  5. THYROID DRUGS [Concomitant]
     Indication: PRODUCT USED FOR UNKNOWN INDICATION

REACTIONS (2)
  - Desmoid tumour [Recovered/Resolved]
  - Colon cancer [Unknown]
